FAERS Safety Report 23459387 (Version 4)
Quarter: 2024Q1

REPORT INFORMATION
  Report Type: Spontaneous
  Country: EG (occurrence: EG)
  Receive Date: 20240131
  Receipt Date: 20240318
  Transmission Date: 20240409
  Serious: Yes (Hospitalization, Other)
  Sender: FDA-Public Use
  Company Number: EG-NOVOPROD-1166953

PATIENT
  Age: 61 Year
  Sex: Male
  Weight: 83 kg

DRUGS (2)
  1. INSULIN HUMAN [Suspect]
     Active Substance: INSULIN HUMAN
     Indication: Type 2 diabetes mellitus
     Dosage: 40 IU, QD (30 U AT MORNING, 10 U AT NIGHT)
     Route: 058
     Dates: start: 199307
  2. VIASALMOL [Concomitant]
     Indication: Hypersensitivity
     Dosage: AS PER NEED
     Route: 055

REACTIONS (3)
  - Knee arthroplasty [Recovered/Resolved]
  - Knee arthroplasty [Not Recovered/Not Resolved]
  - Road traffic accident [Unknown]

NARRATIVE: CASE EVENT DATE: 20210301
